FAERS Safety Report 5604669-5 (Version None)
Quarter: 2008Q1

REPORT INFORMATION
  Report Type: 
  Country: None (occurrence: None)
  Receive Date: 20080124
  Receipt Date: 20080124
  Transmission Date: 20080703
  Serious: Yes (Other)
  Sender: FDA-Public Use
  Company Number: None

PATIENT
  Age: 35 Year
  Sex: Female
  Weight: 54.4316 kg

DRUGS (5)
  1. CHANTIX [Suspect]
     Indication: SMOKING CESSATION THERAPY
     Dosage: 1 MG BID PO
     Route: 048
     Dates: start: 20071226, end: 20080123
  2. TOPAMAX [Concomitant]
  3. CYMBALTA [Concomitant]
  4. PROVIGIL [Concomitant]
  5. KLONOPIN [Concomitant]

REACTIONS (3)
  - DEPRESSION [None]
  - PARANOIA [None]
  - SUICIDAL IDEATION [None]
